FAERS Safety Report 8523206-9 (Version None)
Quarter: 2012Q3

REPORT INFORMATION
  Report Type: 
  Country: None (occurrence: None)
  Receive Date: 20120709
  Receipt Date: 20120625
  Transmission Date: 20120928
  Serious: Yes (Life-Threatening)
  Sender: FDA-Public Use
  Company Number: DSA_58262_2012

PATIENT
  Age: 54 Year
  Sex: Female

DRUGS (3)
  1. FLAGYL [Suspect]
     Indication: ENTEROCOLITIS BACTERIAL
     Dosage: (1 DF TID ORAL)
     Route: 048
     Dates: start: 20120502, end: 20120506
  2. CEFTRIAXONE [Suspect]
     Indication: ENTEROCOLITIS BACTERIAL
     Dosage: (1 DF QD INTRAVENOUS (NOT OTHERWISE SPECIFIED))
     Route: 042
     Dates: start: 20120502, end: 20120505
  3. CIPROFLOXACIN HYDROCHLORIDE [Suspect]
     Indication: ENTEROCOLITIS BACTERIAL
     Dosage: (1 DF BID ORAL)
     Route: 048
     Dates: start: 20120502, end: 20120506

REACTIONS (5)
  - THROMBOTIC THROMBOCYTOPENIC PURPURA [None]
  - CONFUSIONAL STATE [None]
  - HAEMOLYTIC ANAEMIA [None]
  - PROTEINURIA [None]
  - RENAL FAILURE ACUTE [None]
